FAERS Safety Report 9391505 (Version 1)
Quarter: 2013Q3

REPORT INFORMATION
  Report Type: Spontaneous
  Country: US (occurrence: None)
  Receive Date: 20130705
  Receipt Date: 20130705
  Transmission Date: 20140515
  Serious: Yes (Other)
  Sender: FDA-Public Use
  Company Number: 2013P1010837

PATIENT
  Age: 45 Year
  Sex: Male

DRUGS (4)
  1. ZOLPIDEM [Suspect]
     Indication: INSOMNIA
  2. PAROXETINE [Suspect]
     Indication: DEPRESSION
  3. LORAZEPAM [Concomitant]
  4. QUETIAPINE [Concomitant]

REACTIONS (9)
  - Homicide [None]
  - Confusional state [None]
  - Catatonia [None]
  - Incoherent [None]
  - Dysarthria [None]
  - Convulsion [None]
  - Amnesia [None]
  - Major depression [None]
  - Psychotic disorder [None]
